FAERS Safety Report 25212547 (Version 2)
Quarter: 2025Q2

REPORT INFORMATION
  Report Type: Spontaneous
  Country: US (occurrence: US)
  Receive Date: 20250418
  Receipt Date: 20250513
  Transmission Date: 20250717
  Serious: No
  Sender: SANOFI AVENTIS
  Company Number: US-SA-2025SA112044

PATIENT
  Age: 79 Year
  Sex: Female

DRUGS (24)
  1. DUPIXENT [Suspect]
     Active Substance: DUPILUMAB
     Indication: Nasal polyps
     Dosage: 300 MG, QOW
     Route: 058
     Dates: start: 20250404
  2. RESTORIL [Concomitant]
     Active Substance: TEMAZEPAM
     Route: 048
     Dates: start: 20240911
  3. PROLIA [Concomitant]
     Active Substance: DENOSUMAB
     Dosage: INJECT 1 ML (60 MG TOTAL) UNDER THE SKIN EVERY 6 (SIX) MONTHS
     Route: 058
  4. VALIUM [Concomitant]
     Active Substance: DIAZEPAM
     Indication: Anxiety
     Route: 048
     Dates: start: 20241007
  5. BIOTIN [Concomitant]
     Active Substance: BIOTIN
     Dosage: TAKE 1 CAPSULE BY MOUTH DAILY
     Route: 048
  6. MIRALAX [Concomitant]
     Active Substance: POLYETHYLENE GLYCOL 3350
     Dosage: TAKE 1 PACKET (17 G TOTAL) BY MOUTH DAILY
     Route: 048
     Dates: start: 20241008
  7. ASMANEX [Concomitant]
     Active Substance: MOMETASONE FUROATE
     Dosage: INHALE 1 PUFF 2 (TWO) TIMES A DAY
     Route: 055
  8. ZOFRAN [Concomitant]
     Active Substance: ONDANSETRON HYDROCHLORIDE
     Indication: Nausea
     Route: 048
     Dates: start: 20240824
  9. ZOFRAN [Concomitant]
     Active Substance: ONDANSETRON HYDROCHLORIDE
     Indication: Vomiting
  10. VITAMIN B12 [Concomitant]
     Active Substance: CYANOCOBALAMIN
     Dosage: TAKE 1 TABLET (1,000 MCG TOTAL) BY MOUTH EVERY OTHER DAY
     Route: 048
  11. COLACE [Concomitant]
     Active Substance: DOCUSATE SODIUM
     Indication: Diarrhoea
     Dosage: TAKE 1 CAPSULE (100 MG TOTAL) BY MOUTH 2 (TWO) TIMES A DAY
     Route: 048
     Dates: start: 20241007
  12. PERCOCET [Concomitant]
     Active Substance: ACETAMINOPHEN\OXYCODONE HYDROCHLORIDE
     Indication: Pain
     Route: 048
     Dates: start: 20241005
  13. ASTEPRO [Concomitant]
     Active Substance: AZELASTINE HYDROCHLORIDE
     Dosage: 1 SPRAY INTO EACH NOSTRIL 2 (TWO) TIMES A DAY
     Route: 045
  14. Dulcolax [Concomitant]
     Indication: Constipation
     Route: 048
     Dates: start: 20241007
  15. NALOXONE [Concomitant]
     Active Substance: NALOXONE
     Dates: start: 20241005
  16. VITAMIN D3 [Concomitant]
     Active Substance: CHOLECALCIFEROL
     Dosage: TAKE 1 TABLET (2,000 UNITS TOTAL) BY MOUTH DAILY
     Route: 048
     Dates: start: 20241008
  17. VITAMINS [Concomitant]
     Active Substance: VITAMINS
     Dosage: TAKE 1 TABLET BY MOUTH DAILY
     Route: 048
  18. CALCIUM CARBONATE [Concomitant]
     Active Substance: CALCIUM CARBONATE
     Dosage: TAKE 1 TABLET BY MOUTH 2 (TWO) TIMES A DAY
     Route: 048
  19. ROXICODONE [Concomitant]
     Active Substance: OXYCODONE HYDROCHLORIDE
     Indication: Pain
     Route: 048
     Dates: start: 20241007
  20. PRAVACHOL [Concomitant]
     Active Substance: PRAVASTATIN SODIUM
     Dosage: TAKE 1 TABLET (40 MG TOTAL) BY MOUTH DAILY AT BEDTIME
     Route: 048
     Dates: start: 20240821
  21. MEDROL [Concomitant]
     Active Substance: METHYLPREDNISOLONE
     Dosage: TAKE ALL DAILY TABLETS IN THE MORNING WITH BREAKFAST
     Route: 048
     Dates: start: 20250314
  22. FLEXERIL [Concomitant]
     Active Substance: CYCLOBENZAPRINE HYDROCHLORIDE
     Indication: Muscle spasms
     Route: 048
     Dates: start: 20241007
  23. VITAMIN B2 [Concomitant]
     Active Substance: RIBOFLAVIN
     Dosage: 400.000MG QD
     Route: 048
  24. ELAVIL [Concomitant]
     Active Substance: AMITRIPTYLINE HYDROCHLORIDE
     Dosage: TAKE 1 TABLET (10 MG TOTAL) BY MOUTH DAILY AT BEDTIME
     Route: 048

REACTIONS (1)
  - Pruritus [Not Recovered/Not Resolved]

NARRATIVE: CASE EVENT DATE: 20250408
